FAERS Safety Report 7352259-9 (Version None)
Quarter: 2011Q1

REPORT INFORMATION
  Report Type: 
  Country: None (occurrence: None)
  Receive Date: 20110309
  Receipt Date: 20110309
  Transmission Date: 20110831
  Serious: Yes (Hospitalization)
  Sender: FDA-Public Use
  Company Number: None

PATIENT
  Sex: Female
  Weight: 125 kg

DRUGS (15)
  1. ZANTAC [Concomitant]
  2. LEVOTHYROXINE SODIUM [Concomitant]
  3. BACTRIM [Concomitant]
  4. BROMOCRIPTINE MESYLATE [Concomitant]
  5. BENZTROPINE MESYLATE [Concomitant]
  6. CALCIUM CARBONATE [Concomitant]
  7. LAMOTRIGINE [Concomitant]
  8. ABILIFY [Suspect]
     Indication: BIPOLAR I DISORDER
     Dosage: 10MG DAILY PO
     Route: 048
     Dates: start: 20110215, end: 20110305
  9. XANAX [Concomitant]
  10. ASPIRIN [Concomitant]
  11. ZOLOFT [Concomitant]
  12. ATROPINE-SCOPOLAMINE [Concomitant]
  13. LIDOCAINE 2% ONE TEASPOON MIXED WITH MIRALAX TO MAKE A GI COCKTAIL [Concomitant]
  14. RISPERDONE [Concomitant]
  15. IMITREX [Concomitant]

REACTIONS (3)
  - ERYTHEMA NODOSUM [None]
  - CELLULITIS [None]
  - NO THERAPEUTIC RESPONSE [None]
